FAERS Safety Report 14792494 (Version 1)
Quarter: 2018Q2

REPORT INFORMATION
  Report Type: Spontaneous
  Country: US (occurrence: US)
  Receive Date: 20180414
  Receipt Date: 20180414
  Transmission Date: 20180711
  Serious: Yes (Other)
  Sender: FDA-Public Use
  Company Number: None

PATIENT
  Age: 63 Year
  Sex: Male
  Weight: 96.75 kg

DRUGS (17)
  1. ASIAN GINSENG [Concomitant]
     Active Substance: ASIAN GINSENG
  2. NAD+ (NICOTINAMIDE ADENINE DINUCLEOTIDE) [Concomitant]
  3. ASHWAGANDHA [Concomitant]
     Active Substance: HERBALS
  4. GLUCOSAMINE + CHONDROITN [Concomitant]
  5. VITAMIN E [Concomitant]
     Active Substance: .ALPHA.-TOCOPHEROL
  6. SAW PALMETTO [Concomitant]
     Active Substance: HERBALS\SAW PALMETTO
  7. LEUPROLIDE ACETATE SUSPENSION [Suspect]
     Active Substance: LEUPROLIDE ACETATE
     Indication: PROSTATIC SPECIFIC ANTIGEN INCREASED
     Dosage: OTHER FREQUENCY:3 - 6 MONTHS;?
     Route: 030
     Dates: start: 20150403, end: 20170928
  8. SAINT JOHNS WORT [Concomitant]
  9. TOPCARE PROSTATE HEALTH COMPLEX [Concomitant]
  10. GNC WHEY PROTEIN [Concomitant]
  11. FENUGREEK [Concomitant]
     Active Substance: FENUGREEK SEED
  12. ECHINACEA COMPLEX [Concomitant]
  13. NETTLE LEAF [Concomitant]
  14. TOPCARE MULTIVITAMINS [Concomitant]
  15. IP-6 ONOSITOL [Concomitant]
  16. GINKGO BILOBA [Concomitant]
     Active Substance: GINKGO
  17. NUGENIX ESTRO-REGULATOR [Concomitant]

REACTIONS (2)
  - Erectile dysfunction [None]
  - Loss of libido [None]

NARRATIVE: CASE EVENT DATE: 20180414
